FAERS Safety Report 6794880-2 (Version None)
Quarter: 2010Q2

REPORT INFORMATION
  Report Type: 
  Country: None (occurrence: None)
  Receive Date: 20100624
  Receipt Date: 20100624
  Transmission Date: 20101027
  Serious: No
  Sender: FDA-Public Use
  Company Number: None

PATIENT
  Sex: Female
  Weight: 58.9676 kg

DRUGS (1)
  1. BONIVA [Suspect]
     Indication: OSTEOPOROSIS
     Dosage: 1 -1ST MONTH
     Dates: start: 20100421

REACTIONS (3)
  - MUSCLE SPASMS [None]
  - OROPHARYNGEAL PAIN [None]
  - URINARY TRACT INFECTION [None]
